FAERS Safety Report 5033977-4 (Version None)
Quarter: 2006Q2

REPORT INFORMATION
  Report Type: 
  Country: None (occurrence: None)
  Receive Date: 20060512
  Receipt Date: 20050708
  Transmission Date: 20061013
  Serious: Yes (Hospitalization)
  Sender: FDA-Public Use
  Company Number: HQWYE111411JUL05

PATIENT
  Age: 49 Year
  Weight: 74.91 kg

DRUGS (8)
  1. INDERAL LA [Suspect]
     Indication: HYPERTENSION
     Dosage: SMALLER DOSE- EXACT DOSE AND FREQUENCY NOT PROVIDED, ORAL
     Route: 048
  2. INDERAL LA [Suspect]
     Indication: TACHYCARDIA
     Dosage: SMALLER DOSE- EXACT DOSE AND FREQUENCY NOT PROVIDED, ORAL
     Route: 048
  3. INDERAL LA [Suspect]
     Dosage: SEE IMAGE
     Route: 048
  4. SYNTHROID [Concomitant]
  5. NEXIUM [Concomitant]
  6. CITRACAL (CALCIUM CITRATE) [Concomitant]
  7. CHOLESTEROL- AND TRIGLYCERIDE REDUCERS (CHOLESTEROL- AND TRIGLYCERIDE [Concomitant]
  8. ASPIRIN [Concomitant]

REACTIONS (1)
  - DRUG EFFECT DECREASED [None]
